FAERS Safety Report 4435150-7 (Version None)
Quarter: 2004Q3

REPORT INFORMATION
  Report Type: 
  Country: None (occurrence: None)
  Receive Date: 20040826
  Receipt Date: 20040826
  Transmission Date: 20050211
  Serious: Yes (Hospitalization, Other)
  Sender: FDA-Public Use
  Company Number: None

PATIENT
  Age: 39 Year
  Sex: Female
  Weight: 84.369 kg

DRUGS (6)
  1. IRINOTECAN  40 MG VIAL  PHARMACIA + UPJOHN [Suspect]
     Indication: SMALL CELL LUNG CANCER STAGE UNSPECIFIED
     Dosage: 40 MG/M2 DAYS 1.0.1 IV
     Route: 042
     Dates: start: 20040811, end: 20040811
  2. CISPLATIN [Suspect]
     Dosage: 60 MG/M2 DAY 1 + 4
     Dates: start: 20040811, end: 20040811
  3. DECADRON [Concomitant]
  4. LASIX [Concomitant]
  5. ZOFRAN [Concomitant]
  6. MORPHINE SULFATE [Concomitant]

REACTIONS (7)
  - BLOOD LACTATE DEHYDROGENASE INCREASED [None]
  - DIARRHOEA [None]
  - NAUSEA [None]
  - NEPHROPATHY TOXIC [None]
  - SOMNOLENCE [None]
  - TUMOUR LYSIS SYNDROME [None]
  - VOMITING [None]
